FAERS Safety Report 18649937 (Version 2)
Quarter: 2021Q1

REPORT INFORMATION
  Report Type: Spontaneous
  Country: US (occurrence: US)
  Receive Date: 20201222
  Receipt Date: 20210105
  Transmission Date: 20210419
  Serious: Yes (Other)
  Sender: FDA-Public Use
  Company Number: US-PFIZER INC-2020501113

PATIENT
  Age: 72 Year
  Sex: Female
  Weight: 54.4 kg

DRUGS (6)
  1. LIDOCAINE HCL [Suspect]
     Active Substance: LIDOCAINE HYDROCHLORIDE
     Dosage: 2 MG/MIN
  2. KETAMINE HCL [Suspect]
     Active Substance: KETAMINE HYDROCHLORIDE
     Indication: ANAESTHESIA
     Dosage: 3?5 UG/KG/MIN
  3. ISOFLURANE. [Suspect]
     Active Substance: ISOFLURANE
     Dosage: UNK %
  4. SUFENTANIL CITRATE. [Suspect]
     Active Substance: SUFENTANIL CITRATE
     Indication: ANAESTHESIA
     Dosage: 0.1?0.5 UG/KG/HR
  5. DOBUTAMINE [Concomitant]
     Active Substance: DOBUTAMINE HYDROCHLORIDE
     Dosage: 2?4 UG/KG/MIN FOR THE FIRST HOUR
  6. PROPOFOL. [Suspect]
     Active Substance: PROPOFOL
     Indication: ANAESTHESIA
     Dosage: 25?50 UG/KG/MIN

REACTIONS (3)
  - Pulse pressure increased [Recovering/Resolving]
  - Procedural hypotension [Recovering/Resolving]
  - Vasoplegia syndrome [Recovering/Resolving]
